FAERS Safety Report 12630701 (Version 1)
Quarter: 2016Q3

REPORT INFORMATION
  Report Type: Spontaneous
  Country: FR (occurrence: FR)
  Receive Date: 20160808
  Receipt Date: 20160808
  Transmission Date: 20161109
  Serious: Yes (Other)
  Sender: FDA-Public Use
  Company Number: FR-ELI_LILLY_AND_COMPANY-FR201607012689

PATIENT
  Sex: Female

DRUGS (6)
  1. HUMALOG [Suspect]
     Active Substance: INSULIN LISPRO
     Indication: PRODUCT USED FOR UNKNOWN INDICATION
     Dosage: UNK, UNKNOWN
     Route: 058
  2. ASPEGIC [Concomitant]
     Active Substance: ASPIRIN DL-LYSINE
     Indication: ANTICOAGULANT THERAPY
     Dosage: UNK
     Dates: start: 201606
  3. PLAQUENIL                          /00072602/ [Suspect]
     Active Substance: HYDROXYCHLOROQUINE DIPHOSPHATE
     Indication: CUTANEOUS LUPUS ERYTHEMATOSUS
     Dosage: UNK, QD
     Route: 065
     Dates: start: 2004
  4. LEVONOX [Concomitant]
     Active Substance: ENOXAPARIN
     Dosage: 0.4 ML, QD
     Dates: start: 201606
  5. LANTUS [Suspect]
     Active Substance: INSULIN GLARGINE
     Indication: PRODUCT USED FOR UNKNOWN INDICATION
     Dosage: UNK, UNKNOWN
     Route: 058
  6. PLAQUENIL                          /00072602/ [Suspect]
     Active Substance: HYDROXYCHLOROQUINE DIPHOSPHATE
     Dosage: UNK, QD
     Route: 065
     Dates: start: 201606

REACTIONS (7)
  - Proteinuria [Unknown]
  - Diabetes mellitus inadequate control [Not Recovered/Not Resolved]
  - Renal disorder [Unknown]
  - Glycosylated haemoglobin increased [Unknown]
  - Exposure during pregnancy [Unknown]
  - Hypertension [Unknown]
  - Haematuria [Unknown]

NARRATIVE: CASE EVENT DATE: 201604
